FAERS Safety Report 12228599 (Version 1)
Quarter: 2016Q2

REPORT INFORMATION
  Report Type: Spontaneous
  Country: GB (occurrence: GB)
  Receive Date: 20160401
  Receipt Date: 20160401
  Transmission Date: 20160815
  Serious: Yes (Other)
  Sender: FDA-Public Use
  Company Number: GB-WATSON-2016-06367

PATIENT
  Age: 70 Year
  Sex: Male
  Weight: 57 kg

DRUGS (5)
  1. RIVAROXABAN [Concomitant]
     Active Substance: RIVAROXABAN
     Indication: PRODUCT USED FOR UNKNOWN INDICATION
     Dosage: 20 MG, DAILY
     Route: 065
  2. ROPINIROLE (UNKNOWN) [Suspect]
     Active Substance: ROPINIROLE
     Indication: PRODUCT USED FOR UNKNOWN INDICATION
     Dosage: 6 MG, DAILY (MODIFIED RELEASE.)
     Route: 065
  3. MIRABEGRON [Suspect]
     Active Substance: MIRABEGRON
     Indication: MICTURITION URGENCY
     Dosage: 25 MG, DAILY
     Route: 048
     Dates: start: 20160128, end: 20160205
  4. FLUDROCORTISONE [Concomitant]
     Active Substance: FLUDROCORTISONE
     Indication: PRODUCT USED FOR UNKNOWN INDICATION
     Dosage: 400 ?G, DAILY
     Route: 065
  5. BISOPROLOL [Concomitant]
     Active Substance: BISOPROLOL
     Indication: PRODUCT USED FOR UNKNOWN INDICATION
     Dosage: 1.25 MG, BID
     Route: 065

REACTIONS (6)
  - Hallucination [Recovered/Resolved]
  - Confusional state [Recovered/Resolved]
  - Amnesia [Recovered/Resolved]
  - Ataxia [Recovered/Resolved]
  - Abnormal dreams [Recovered/Resolved]
  - Somnolence [Recovered/Resolved]

NARRATIVE: CASE EVENT DATE: 20160202
